FAERS Safety Report 7832128-8 (Version None)
Quarter: 2011Q4

REPORT INFORMATION
  Report Type: 
  Country: None (occurrence: None)
  Receive Date: 20111022
  Receipt Date: 20110929
  Transmission Date: 20120403
  Serious: Yes (Hospitalization)
  Sender: FDA-Public Use
  Company Number: US-BAYER-2011-017607

PATIENT
  Age: 20 Year
  Sex: Female
  Weight: 72.109 kg

DRUGS (12)
  1. YAZ [Suspect]
     Indication: ACNE
     Dosage: UNK
     Route: 048
     Dates: start: 20080801, end: 20091001
  2. SINGULAIR [Concomitant]
  3. METOPROLOL TARTRATE [Concomitant]
  4. PLAVIX [Concomitant]
     Indication: THROMBOSIS PROPHYLAXIS
  5. HYDROXYUREA [Concomitant]
  6. DIGOXIN [Concomitant]
     Indication: CARDIAC DISORDER
  7. IBUPROFEN [Concomitant]
  8. RIFAMPIN [Concomitant]
  9. YAZ [Suspect]
     Indication: ORAL CONTRACEPTION
  10. DEXAMETHASONE [Concomitant]
     Indication: INFECTIOUS MONONUCLEOSIS
  11. ASPIRIN [Concomitant]
  12. BACTRIM [Concomitant]

REACTIONS (3)
  - SPLENIC INFARCTION [None]
  - TACHYCARDIA [None]
  - PULMONARY EMBOLISM [None]
